FAERS Safety Report 18299018 (Version 1)
Quarter: 2020Q3

REPORT INFORMATION
  Report Type: Spontaneous
  Country: DE (occurrence: DE)
  Receive Date: 20200922
  Receipt Date: 20200922
  Transmission Date: 20201103
  Serious: Yes (Other)
  Sender: FDA-Public Use
  Company Number: DE-ELI_LILLY_AND_COMPANY-DE202009005059

PATIENT
  Sex: Male

DRUGS (1)
  1. CIALIS [Suspect]
     Active Substance: TADALAFIL
     Indication: MENTAL DISORDER
     Dosage: UNK UNK, UNKNOWN
     Route: 065

REACTIONS (5)
  - Thyroid cancer [Recovered/Resolved]
  - Pulmonary embolism [Recovered/Resolved]
  - Nasal congestion [Unknown]
  - Off label use [Unknown]
  - Flushing [Unknown]
